FAERS Safety Report 14403535 (Version 5)
Quarter: 2018Q1

REPORT INFORMATION
  Report Type: Spontaneous
  Country: DE (occurrence: DE)
  Receive Date: 20180117
  Receipt Date: 20180316
  Transmission Date: 20180509
  Serious: Yes (Hospitalization, Other)
  Sender: FDA-Public Use
  Company Number: DE-SA-2018SA004406

PATIENT
  Age: 78 Year
  Sex: Female

DRUGS (35)
  1. FOLIC ACID. [Concomitant]
     Active Substance: FOLIC ACID
     Route: 048
     Dates: start: 20140502
  2. LISALGIL [Interacting]
     Active Substance: METAMIZOLE SODIUM
     Dosage: 1500 MG PO ON 17-05-14?2000 MG PO 18-05-14?1000 MG 20-05-14?500 MG PO ON 22-05-14?1000 MG PO 23-05-1
     Route: 048
     Dates: start: 20140518, end: 20140519
  3. LISALGIL [Interacting]
     Active Substance: METAMIZOLE SODIUM
     Route: 048
     Dates: start: 20140517, end: 20140517
  4. PIPAMPERONE [Interacting]
     Active Substance: PIPAMPERONE
     Route: 048
     Dates: start: 20140510, end: 20140513
  5. PIPAMPERONE [Interacting]
     Active Substance: PIPAMPERONE
     Route: 048
     Dates: start: 20140525, end: 20140526
  6. PIPAMPERONE [Interacting]
     Active Substance: PIPAMPERONE
     Route: 048
     Dates: start: 20140527, end: 20140527
  7. LISINOPRIL. [Interacting]
     Active Substance: LISINOPRIL
     Route: 048
     Dates: start: 20140524
  8. LISALGIL [Interacting]
     Active Substance: METAMIZOLE SODIUM
     Dosage: 1500 MG PO ON 17-05-14 2000 MG PO 18-05-14 1000 MG 20-05-14 500 MG PO ON 22-05-14?1000 MG PO 23-05-1
     Route: 048
     Dates: start: 20140523, end: 20140525
  9. ABILIFY [Interacting]
     Active Substance: ARIPIPRAZOLE
     Route: 048
     Dates: start: 20140515, end: 20140520
  10. PREDNISOLON [Concomitant]
     Active Substance: PREDNISOLONE
     Route: 048
     Dates: start: 20140528
  11. LISALGIL [Interacting]
     Active Substance: METAMIZOLE SODIUM
     Route: 048
     Dates: start: 20140522, end: 20140522
  12. LISALGIL [Interacting]
     Active Substance: METAMIZOLE SODIUM
     Route: 048
     Dates: start: 20140526, end: 20140528
  13. PIPAMPERONE [Interacting]
     Active Substance: PIPAMPERONE
     Route: 048
     Dates: start: 20140515, end: 20140524
  14. SIMVASTATIN. [Concomitant]
     Active Substance: SIMVASTATIN
     Route: 048
     Dates: start: 20140201
  15. MACROGOL [Concomitant]
     Active Substance: POLYETHYLENE GLYCOLS
     Route: 048
     Dates: start: 20110101
  16. AMLODIPIN [Concomitant]
     Active Substance: AMLODIPINE BESYLATE
     Route: 048
     Dates: start: 20110101
  17. VENLAFAXINE [Concomitant]
     Active Substance: VENLAFAXINE HYDROCHLORIDE
     Route: 048
     Dates: start: 2012
  18. LISINOPRIL. [Interacting]
     Active Substance: LISINOPRIL
     Route: 048
     Dates: start: 20140520, end: 20140520
  19. MIRTAZAPINE. [Interacting]
     Active Substance: MIRTAZAPINE
     Route: 048
  20. INSULIN [Concomitant]
     Active Substance: INSULIN NOS
     Route: 058
  21. CLOPIDOGREL [Concomitant]
     Active Substance: CLOPIDOGREL BISULFATE
     Route: 048
     Dates: start: 2011
  22. PANTOPRAZOL [Concomitant]
     Active Substance: PANTOPRAZOLE SODIUM
     Route: 048
  23. STILNOX [Suspect]
     Active Substance: ZOLPIDEM TARTRATE
     Route: 048
     Dates: start: 20140527
  24. LISALGIL [Interacting]
     Active Substance: METAMIZOLE SODIUM
     Route: 048
     Dates: start: 20140520, end: 20140521
  25. PIPAMPERONE [Interacting]
     Active Substance: PIPAMPERONE
     Route: 048
     Dates: start: 20140528, end: 20140528
  26. ABILIFY [Interacting]
     Active Substance: ARIPIPRAZOLE
     Route: 048
     Dates: start: 20140508, end: 20140514
  27. RESONIUM [Concomitant]
     Active Substance: SODIUM POLYSTYRENE SULFONATE
     Dosage: 2 TABLE SPOON
     Route: 048
     Dates: start: 20140528
  28. LISALGIL [Interacting]
     Active Substance: METAMIZOLE SODIUM
     Dosage: 500-1000MG
     Route: 048
     Dates: start: 20140502, end: 20140517
  29. LISALGIL [Interacting]
     Active Substance: METAMIZOLE SODIUM
     Route: 048
     Dates: start: 20140530
  30. DUROGESIC [Interacting]
     Active Substance: FENTANYL
     Dosage: 1DF= 75?G/H EVERY 3DAYS
     Route: 062
     Dates: start: 20120101
  31. FORMOTEROL [Concomitant]
     Active Substance: FORMOTEROL
     Route: 065
     Dates: start: 20131201
  32. ANTAZOLINE HYDROCHLORIDE [Concomitant]
     Active Substance: ANTAZOLINE HYDROCHLORIDE
     Route: 065
  33. PIPAMPERONE [Interacting]
     Active Substance: PIPAMPERONE
     Route: 048
     Dates: start: 20140508, end: 20140509
  34. DIAZEPAM. [Interacting]
     Active Substance: DIAZEPAM
     Indication: RESTLESSNESS
     Dosage: SINCE YEARS
     Route: 048
     Dates: start: 20140526, end: 20140528
  35. DIAZEPAM. [Interacting]
     Active Substance: DIAZEPAM
     Indication: RESTLESSNESS
     Dosage: IN NIGHTS 26/27-MAY-2014 AND 27/28-MAY-2014 IN TOTAL 30 MG IN?26 HOURS
     Route: 030
     Dates: start: 20140526, end: 20140528

REACTIONS (14)
  - Hypokalaemia [Unknown]
  - Facial nerve disorder [Unknown]
  - Prescribed underdose [Unknown]
  - Myoclonus [Unknown]
  - Left ventricular hypertrophy [Unknown]
  - Fall [Unknown]
  - Pancytopenia [Recovered/Resolved]
  - Loss of consciousness [Recovered/Resolved]
  - Diarrhoea [Unknown]
  - Rash [Unknown]
  - Drug interaction [Unknown]
  - Dysarthria [Unknown]
  - Syncope [Recovered/Resolved]
  - Restlessness [Unknown]

NARRATIVE: CASE EVENT DATE: 20140519
